FAERS Safety Report 18577112 (Version 1)
Quarter: 2020Q4

REPORT INFORMATION
  Report Type: Spontaneous
  Country: GB (occurrence: GB)
  Receive Date: 20201203
  Receipt Date: 20201203
  Transmission Date: 20210114
  Serious: Yes (Other)
  Sender: FDA-Public Use
  Company Number: GB-BAUSCH-2004BL007361

PATIENT
  Age: 20 Year
  Sex: Female

DRUGS (1)
  1. MINIMS CYCLOPENTOLATE HYDROCHLORIDE 1.0% W/V EYE DROPS, SOLUTION [Suspect]
     Active Substance: CYCLOPENTOLATE HYDROCHLORIDE
     Indication: MYDRIASIS
     Route: 061

REACTIONS (1)
  - Urticaria [Unknown]
